FAERS Safety Report 8954076 (Version 2)
Quarter: 2013Q1

REPORT INFORMATION
  Report Type: Spontaneous
  Country: US (occurrence: US)
  Receive Date: 20121207
  Receipt Date: 20130121
  Transmission Date: 20140127
  Serious: Yes (Hospitalization, Other)
  Sender: FDA-Public Use
  Company Number: US-BAYER-2012-126424

PATIENT
  Age: 26 Year
  Sex: Female

DRUGS (2)
  1. MIRENA [Suspect]
     Indication: CONTRACEPTION
     Dosage: 20 MCG/24HR, CONT
     Route: 015
     Dates: start: 20120828, end: 20121009
  2. LIDOCAINE [Concomitant]

REACTIONS (4)
  - Device dislocation [None]
  - Genital haemorrhage [None]
  - Device dislocation [None]
  - Abdominal pain lower [None]
